FAERS Safety Report 7399671-X (Version None)
Quarter: 2011Q2

REPORT INFORMATION
  Report Type: 
  Country: None (occurrence: None)
  Receive Date: 20110407
  Receipt Date: 20110329
  Transmission Date: 20111010
  Serious: Yes (Hospitalization)
  Sender: FDA-Public Use
  Company Number: JP-BAYER-2011-018927

PATIENT
  Sex: Male
  Weight: 70 kg

DRUGS (9)
  1. OMEPRAL [Concomitant]
     Indication: PROPHYLAXIS AGAINST GASTROINTESTINAL ULCER
     Dosage: DAILY DOSE 20 MG
     Route: 048
     Dates: start: 20100427
  2. LASIX [Concomitant]
     Indication: POLYURIA
     Dosage: DAILY DOSE 40 MG
     Route: 048
     Dates: start: 20110322
  3. ASPIRIN \^BAYER\^ (JP ASPIRIN) [Concomitant]
     Route: 048
  4. PERSANTIN [Concomitant]
     Indication: PROTEIN URINE
     Dosage: DAILY DOSE 300 MG
     Route: 048
     Dates: start: 20110316
  5. DIOVAN [Concomitant]
     Indication: HYPERTENSION
     Dosage: DAILY DOSE 80 MG
     Route: 048
     Dates: start: 20110313
  6. NEXAVAR [Suspect]
     Indication: HEPATIC NEOPLASM MALIGNANT
     Dosage: 400 MG, BID
     Route: 048
     Dates: start: 20100427, end: 20110216
  7. AMLODIN [Concomitant]
     Indication: HYPERTENSION
     Dosage: DAILY DOSE 5 MG
     Route: 048
     Dates: start: 20110305
  8. URSO 250 [Concomitant]
     Indication: HEPATITIS C
     Dosage: DAILY DOSE 600 MG
     Route: 048
     Dates: start: 20110313
  9. LIPITOR [Concomitant]
     Indication: BLOOD CHOLESTEROL INCREASED
     Dosage: DAILY DOSE 10 MG
     Route: 048
     Dates: start: 20110322

REACTIONS (1)
  - NEPHROTIC SYNDROME [None]
